FAERS Safety Report 14224670 (Version 2)
Quarter: 2017Q4

REPORT INFORMATION
  Report Type: Report from Study
  Country: None (occurrence: AR)
  Receive Date: 20171127
  Receipt Date: 20171224
  Transmission Date: 20180321
  Serious: Yes (Life-Threatening, Hospitalization)
  Sender: FDA-Public Use
  Company Number: AR-ABBVIE-17K-007-2174499-00

PATIENT
  Age: 6 Year
  Sex: Female

DRUGS (2)
  1. HUMIRA [Suspect]
     Active Substance: ADALIMUMAB
     Route: 058
     Dates: end: 20171024
  2. HUMIRA [Suspect]
     Active Substance: ADALIMUMAB
     Indication: CROHN^S DISEASE
     Route: 058
     Dates: start: 20151101

REACTIONS (7)
  - Drug ineffective [Recovered/Resolved]
  - Megacolon [Recovering/Resolving]
  - Haematochezia [Recovering/Resolving]
  - Crohn^s disease [Not Recovered/Not Resolved]
  - Dehydration [Recovering/Resolving]
  - Drug ineffective [Not Recovered/Not Resolved]
  - Crohn^s disease [Recovered/Resolved]

NARRATIVE: CASE EVENT DATE: 20171117
